FAERS Safety Report 7981728-3 (Version None)
Quarter: 2011Q4

REPORT INFORMATION
  Report Type: 
  Country: None (occurrence: None)
  Receive Date: 20111213
  Receipt Date: 20111130
  Transmission Date: 20120403
  Serious: Yes (Other)
  Sender: FDA-Public Use
  Company Number: 1000022676

PATIENT
  Age: 73 Year
  Sex: Female
  Weight: 86 kg

DRUGS (15)
  1. VENTOLINE (SALBUTAMOL SULFATE) (INHALANT) (SALBUTAMOL SULFATE) [Concomitant]
  2. FENPROCOUMON (PHENPROCOUMON) [Concomitant]
  3. ACTONEL (RISEDRONATE SODIUM) (RISEDRONATE SODIUM) [Concomitant]
  4. PARACETAMOL WITH CODEINE (PARACETAMOL, CODEINE) (TABLETS) (PARACETAMOL [Concomitant]
  5. SPIRIVA (TIOTROPIUM BROMIDE) (INHALANT) (TIOTROPIUM BROMIDE) [Concomitant]
  6. ROFLUMILAST (ROFLUMILAST) (500 MICROGRAM, TABLETS) [Suspect]
     Indication: CHRONIC OBSTRUCTIVE PULMONARY DISEASE
     Dosage: 500 MCG (500 MCG, 1 IN 1 D), ORAL
     Route: 048
     Dates: start: 20110225, end: 20110301
  7. SERETIDE (SALMETEROL, FLUTICASONE) (INHALANT) (SALMETEROL, FLUTICASONE [Concomitant]
  8. CALCIUM CARBONATE [Concomitant]
  9. OMEPRAZOLE [Concomitant]
  10. PRAMIPEXOLE (PRAMIPEXOLE) [Concomitant]
  11. BUMETANIDE [Concomitant]
  12. ROFLUMILAST (ROFLUMILAST) (500 MICROGRAM, TABLETS) [Suspect]
     Indication: CHRONIC OBSTRUCTIVE PULMONARY DISEASE
     Dosage: 500 MCG (500 MCG, 1 IN 1 D), ORAL
     Route: 048
     Dates: start: 20110501, end: 20110501
  13. LANOXIN [Concomitant]
  14. MAGNESIUM (MAGNESIUM) [Concomitant]
  15. VERAPAMIL [Concomitant]

REACTIONS (8)
  - DEPRESSED MOOD [None]
  - ABDOMINAL PAIN [None]
  - VOMITING [None]
  - HYPOGEUSIA [None]
  - DEPRESSION [None]
  - WEIGHT DECREASED [None]
  - DECREASED APPETITE [None]
  - DECREASED INTEREST [None]
